FAERS Safety Report 16362475 (Version 1)
Quarter: 2019Q2

REPORT INFORMATION
  Report Type: Spontaneous
  Country: US (occurrence: US)
  Receive Date: 20190419
  Receipt Date: 20190419
  Transmission Date: 20190711
  Serious: Yes (Hospitalization)
  Sender: FDA-Public Use
  Company Number: None

PATIENT
  Age: 74 Year
  Sex: Female
  Weight: 62.7 kg

DRUGS (3)
  1. LEUCOVORIN CALCIUM. [Suspect]
     Active Substance: LEUCOVORIN CALCIUM
     Dates: end: 20190408
  2. ELOXATIN [Suspect]
     Active Substance: OXALIPLATIN
     Dates: end: 20190408
  3. 5-FLUOROURACIL (5-FU) [Suspect]
     Active Substance: FLUOROURACIL
     Dates: end: 20190408

REACTIONS (8)
  - Fall [None]
  - Neuropathy peripheral [None]
  - Subdural haematoma [None]
  - Head injury [None]
  - Condition aggravated [None]
  - Subdural haemorrhage [None]
  - Platelet count decreased [None]
  - Loss of consciousness [None]

NARRATIVE: CASE EVENT DATE: 20190416
